FAERS Safety Report 9315386 (Version 3)
Quarter: 2013Q3

REPORT INFORMATION
  Report Type: Spontaneous
  Country: US (occurrence: US)
  Receive Date: 20130529
  Receipt Date: 20130717
  Transmission Date: 20140515
  Serious: Yes (Other)
  Sender: FDA-Public Use
  Company Number: US-PERRIGO-13US005511

PATIENT
  Age: 31 Year
  Sex: Female
  Weight: 56.69 kg

DRUGS (1)
  1. LIQ ANTACID RS MNT LIQ 851 [Suspect]
     Indication: GASTROOESOPHAGEAL REFLUX DISEASE
     Dosage: HEFTY SIP FROM BOTTLE, SINGLE
     Route: 048
     Dates: start: 20130518, end: 20130518

REACTIONS (9)
  - Loss of consciousness [Recovered/Resolved]
  - Incoherent [Recovered/Resolved]
  - Dizziness [Recovered/Resolved]
  - Somnolence [Recovered/Resolved]
  - Paraesthesia [Recovered/Resolved]
  - Fall [Recovered/Resolved]
  - Head injury [Not Recovered/Not Resolved]
  - Wrong technique in drug usage process [Recovered/Resolved]
  - Incorrect dose administered [Recovered/Resolved]
